FAERS Safety Report 23339233 (Version 1)
Quarter: 2023Q4

REPORT INFORMATION
  Report Type: Report from Study
  Country: CH (occurrence: CH)
  Receive Date: 20231226
  Receipt Date: 20231226
  Transmission Date: 20240110
  Serious: Yes (Hospitalization)
  Sender: FDA-Public Use
  Company Number: None

PATIENT
  Age: 53 Year
  Sex: Male

DRUGS (6)
  1. DOCETAXEL [Suspect]
     Active Substance: DOCETAXEL\DOCETAXEL ANHYDROUS
     Indication: Neoadjuvant therapy
     Dosage: 95.5 MG, QCY
  2. ELOXATIN [Suspect]
     Active Substance: OXALIPLATIN
     Dosage: 160 MG CYCLICAL
     Route: 042
     Dates: start: 202306
  3. FLUOROURACIL [Suspect]
     Active Substance: FLUOROURACIL
     Indication: Neoadjuvant therapy
     Dosage: 4950 MG, QCY
     Route: 042
     Dates: start: 202306
  4. FRESUBIN 2 KCAL HP FIBRE [Concomitant]
     Indication: Enteral nutrition
     Dosage: 1000 ML, HS
     Dates: start: 20230523
  5. DEXAMETHASONE SODIUM PHOSPHATE [Concomitant]
     Active Substance: DEXAMETHASONE PHOSPHATE\DEXAMETHASONE SODIUM PHOSPHATE
     Indication: Chemotherapy side effect prophylaxis
     Dosage: 8 MG, TOTAL
     Dates: start: 20230613, end: 20230613
  6. MOTILIUM [Concomitant]
     Active Substance: DOMPERIDONE
     Indication: Prophylaxis of nausea and vomiting
     Dosage: 10 ML, QD
     Route: 048
     Dates: start: 20230612

REACTIONS (4)
  - Metabolic alkalosis [Recovering/Resolving]
  - Nausea [Recovered/Resolved]
  - Vomiting [Recovered/Resolved]
  - Hypokalaemia [Recovering/Resolving]

NARRATIVE: CASE EVENT DATE: 20230618
